FAERS Safety Report 25721765 (Version 1)
Quarter: 2025Q3

REPORT INFORMATION
  Report Type: Spontaneous
  Country: GB (occurrence: GB)
  Receive Date: 20250825
  Receipt Date: 20250825
  Transmission Date: 20251021
  Serious: Yes (Other)
  Sender: MYLAN
  Company Number: None

PATIENT
  Age: 69 Year
  Sex: Male

DRUGS (8)
  1. FAMOTIDINE [Suspect]
     Active Substance: FAMOTIDINE
     Indication: Chronic gastritis
     Dosage: 20 MILLIGRAM, BID (20 MG TWICE DAILY)
     Dates: start: 20250816, end: 20250818
  2. FAMOTIDINE [Suspect]
     Active Substance: FAMOTIDINE
     Dosage: 20 MILLIGRAM, BID (20 MG TWICE DAILY)
     Route: 065
     Dates: start: 20250816, end: 20250818
  3. FAMOTIDINE [Suspect]
     Active Substance: FAMOTIDINE
     Dosage: 20 MILLIGRAM, BID (20 MG TWICE DAILY)
     Route: 065
     Dates: start: 20250816, end: 20250818
  4. FAMOTIDINE [Suspect]
     Active Substance: FAMOTIDINE
     Dosage: 20 MILLIGRAM, BID (20 MG TWICE DAILY)
     Dates: start: 20250816, end: 20250818
  5. ALLOPURINOL [Concomitant]
     Active Substance: ALLOPURINOL
     Indication: Gout
  6. ALLOPURINOL [Concomitant]
     Active Substance: ALLOPURINOL
     Route: 065
  7. ALLOPURINOL [Concomitant]
     Active Substance: ALLOPURINOL
     Route: 065
  8. ALLOPURINOL [Concomitant]
     Active Substance: ALLOPURINOL

REACTIONS (4)
  - Visual impairment [Unknown]
  - Thinking abnormal [Unknown]
  - Dissociation [Not Recovered/Not Resolved]
  - Headache [Unknown]

NARRATIVE: CASE EVENT DATE: 20250818
